FAERS Safety Report 8776776 (Version 1)
Quarter: 2012Q4

REPORT INFORMATION
  Report Type: 
  Country: IT (occurrence: IT)
  Receive Date: 20120911
  Receipt Date: 20120911
  Transmission Date: 20130627
  Serious: Yes (Hospitalization)
  Sender: FDA-Public Use
  Company Number: IT-BAYER-2012-091575

PATIENT
  Age: 42 Year
  Sex: Female

DRUGS (4)
  1. ASPIRINA [Suspect]
     Indication: INFLUENZA
     Dosage: Daily dose 1 DF
     Route: 048
     Dates: start: 20120618, end: 20120618
  2. ASPIRINA [Suspect]
     Indication: INFLUENZA
     Dosage: UNK
     Dates: start: 20120703
  3. AULIN [Concomitant]
     Dosage: UNK
     Route: 048
     Dates: start: 20120618, end: 20120618
  4. TACHIPIRINA [Concomitant]
     Dosage: UNK
     Route: 048
     Dates: start: 20120703

REACTIONS (3)
  - Rash papular [Recovering/Resolving]
  - Dermatitis bullous [Recovering/Resolving]
  - Erythema multiforme [Recovering/Resolving]
